FAERS Safety Report 5322813-4 (Version None)
Quarter: 2007Q2

REPORT INFORMATION
  Report Type: 
  Country: None (occurrence: None)
  Receive Date: 20070511
  Receipt Date: 20070430
  Transmission Date: 20071010
  Serious: Yes (Other)
  Sender: FDA-Public Use
  Company Number: PE-PFIZER INC-2007033085

PATIENT
  Age: 69 Year
  Sex: Male

DRUGS (2)
  1. LYRICA [Suspect]
     Indication: NECK PAIN
     Route: 048
     Dates: start: 20060801, end: 20070101
  2. LIPITOR [Suspect]

REACTIONS (1)
  - RENAL FAILURE [None]
